FAERS Safety Report 8842317 (Version 1)
Quarter: 2012Q4

REPORT INFORMATION
  Report Type: 
  Country: GB (occurrence: GB)
  Receive Date: 20121016
  Receipt Date: 20121016
  Transmission Date: 20130627
  Serious: Yes (Life-Threatening, Hospitalization, Other)
  Sender: FDA-Public Use
  Company Number: GB-PERRIGO-12GB008648

PATIENT
  Age: 52 Year
  Sex: Male
  Weight: 93 kg

DRUGS (6)
  1. LOPERAMIDE 16028/0032 2 MG [Suspect]
     Indication: DIARRHOEA
     Dosage: 5 DF, UNK
     Route: 048
     Dates: start: 20120917, end: 20120918
  2. ASPIRIN [Concomitant]
     Indication: MYOCARDIAL ISCHAEMIA
     Dosage: 75 mg, qd
     Route: 048
     Dates: start: 201211
  3. BISOPROLOL [Concomitant]
     Indication: MYOCARDIAL ISCHAEMIA
     Dosage: 2.5 mg, qd
     Route: 048
     Dates: start: 201203
  4. ISOSORBIDE MONONITRATE [Concomitant]
     Indication: MYOCARDIAL ISCHAEMIA
     Dosage: 25 mg, qd
     Route: 048
     Dates: start: 201011
  5. OMEPRAZOLE [Concomitant]
     Indication: MYOCARDIAL ISCHAEMIA
     Dosage: 20 mg, bid
     Route: 048
     Dates: start: 201004
  6. ROSUVASTATIN [Concomitant]
     Indication: HYPERCHOLESTEROLAEMIA
     Dosage: 10 mg, qd
     Route: 048
     Dates: start: 201010

REACTIONS (4)
  - Anaphylactic reaction [Recovered/Resolved]
  - Urticaria [Recovered/Resolved]
  - Swelling [Recovered/Resolved]
  - Syncope [Recovered/Resolved]
